FAERS Safety Report 4313751-4 (Version None)
Quarter: 2004Q1

REPORT INFORMATION
  Report Type: 
  Country: None (occurrence: None)
  Receive Date: 20040305
  Receipt Date: 20040218
  Transmission Date: 20041129
  Serious: Yes (Other)
  Sender: FDA-Public Use
  Company Number: A03200400507

PATIENT
  Sex: Male

DRUGS (2)
  1. PLAVIX [Suspect]
     Indication: CEREBROVASCULAR ACCIDENT
     Dosage: ORAL
     Route: 048
  2. ASPIRIN [Concomitant]

REACTIONS (3)
  - BLINDNESS UNILATERAL [None]
  - EYE HAEMORRHAGE [None]
  - GASTROINTESTINAL HAEMORRHAGE [None]
